FAERS Safety Report 7214201-0 (Version None)
Quarter: 2011Q1

REPORT INFORMATION
  Report Type: 
  Country: None (occurrence: None)
  Receive Date: 20110107
  Receipt Date: 20101229
  Transmission Date: 20110831
  Serious: Yes (Death, Other)
  Sender: FDA-Public Use
  Company Number: IT-SANOFI-AVENTIS-2011SA000729

PATIENT
  Age: 70 Year
  Sex: Female

DRUGS (2)
  1. CHLORAMBUCIL [Suspect]
     Route: 065
  2. FLUDARABINE PHOSPHATE [Suspect]
     Route: 065

REACTIONS (3)
  - NEOPLASM MALIGNANT [None]
  - DISEASE PROGRESSION [None]
  - AUTOIMMUNE THROMBOCYTOPENIA [None]
